FAERS Safety Report 16199698 (Version 2)
Quarter: 2019Q2

REPORT INFORMATION
  Report Type: Spontaneous
  Country: IT (occurrence: IT)
  Receive Date: 20190415
  Receipt Date: 20190423
  Transmission Date: 20190711
  Serious: Yes (Other)
  Sender: FDA-Public Use
  Company Number: IT-PFIZER INC-2019161575

PATIENT
  Sex: Female

DRUGS (5)
  1. AMLODIPINE [Suspect]
     Active Substance: AMLODIPINE BESYLATE
     Dosage: 5 MG, QD
     Route: 065
  2. LEVOTHYROXINE SODIUM. [Suspect]
     Active Substance: LEVOTHYROXINE SODIUM
     Dosage: 75 UG
     Route: 065
  3. JINARC [Suspect]
     Active Substance: TOLVAPTAN
     Dosage: (45/15), UNK
  4. TRIATEC (RAMIPRIL) [Suspect]
     Active Substance: RAMIPRIL
     Dosage: 2.5MG- 1 TABLET FOR 2 /DIE
     Route: 048
  5. CALCIFEDIOL [Suspect]
     Active Substance: CALCIFEDIOL
     Dosage: 25 GTT DROPS, QW
     Route: 065

REACTIONS (1)
  - Atrial fibrillation [Unknown]
